FAERS Safety Report 9221839 (Version 1)
Quarter: 2013Q2

REPORT INFORMATION
  Report Type: Spontaneous
  Country: US (occurrence: None)
  Receive Date: 20130408
  Receipt Date: 20130408
  Transmission Date: 20140414
  Serious: Yes (Death)
  Sender: FDA-Public Use
  Company Number: AMAG201300051

PATIENT
  Age: 66 Year
  Sex: Female

DRUGS (3)
  1. FERAHEME (FERUMOXYTOL) [Suspect]
     Indication: IRON DEFICIENCY ANAEMIA
     Route: 042
     Dates: start: 20130322, end: 20130322
  2. VENOFER [Concomitant]
  3. THYROXINE [Concomitant]

REACTIONS (6)
  - Cardiac arrest [None]
  - Circulatory collapse [None]
  - Chest pain [None]
  - Dyspnoea [None]
  - Dysgeusia [None]
  - Feeling abnormal [None]
